FAERS Safety Report 4647839-5 (Version None)
Quarter: 2005Q2

REPORT INFORMATION
  Report Type: 
  Country: None (occurrence: None)
  Receive Date: 20050428
  Receipt Date: 20041203
  Transmission Date: 20051028
  Serious: Yes (Hospitalization)
  Sender: FDA-Public Use
  Company Number: GB-GLAXOSMITHKLINE-B0361422A

PATIENT
  Sex: Male

DRUGS (8)
  1. PAROXETINE HYDROCHLORIDE [Suspect]
     Route: 048
     Dates: start: 19980826
  2. DOTHIEPIN HYDROCHLORIDE [Concomitant]
     Dosage: 25MG THREE TIMES PER DAY
     Route: 065
     Dates: start: 20031210
  3. BUSPIRONE HCL [Concomitant]
     Route: 065
     Dates: end: 20031210
  4. COCODAMOL [Concomitant]
     Route: 065
  5. ESCITALOPRAM [Concomitant]
     Route: 065
     Dates: start: 20040402, end: 20040416
  6. MESALAMINE [Concomitant]
     Route: 065
  7. ALCOHOL [Concomitant]
     Route: 065
  8. ZOLPIDEM TARTRATE [Concomitant]
     Route: 065

REACTIONS (12)
  - AGGRESSION [None]
  - DEPRESSED MOOD [None]
  - DRUG WITHDRAWAL SYNDROME [None]
  - HEADACHE [None]
  - ILL-DEFINED DISORDER [None]
  - MALAISE [None]
  - NEGATIVE THOUGHTS [None]
  - OVERDOSE [None]
  - PANIC ATTACK [None]
  - SLEEP DISORDER [None]
  - SUICIDAL IDEATION [None]
  - TENSION [None]
